FAERS Safety Report 20538714 (Version 2)
Quarter: 2022Q3

REPORT INFORMATION
  Report Type: Spontaneous
  Country: FR (occurrence: None)
  Receive Date: 20220302
  Receipt Date: 20220909
  Transmission Date: 20221026
  Serious: Yes (Other)
  Sender: FDA-Public Use
  Company Number: FR-ROCHE-3039093

PATIENT
  Age: 21 Year
  Sex: Female

DRUGS (11)
  1. BACTRIM [Suspect]
     Active Substance: SULFAMETHOXAZOLE\TRIMETHOPRIM
     Indication: Prophylaxis
     Dosage: GIVEN FOR PROPHYLAXIS
     Route: 048
     Dates: start: 20210909, end: 20220212
  2. CEFTRIAXONE [Suspect]
     Active Substance: CEFTRIAXONE
     Indication: Renal graft infection
     Route: 042
     Dates: start: 20220207, end: 20220212
  3. VALGANCICLOVIR [Suspect]
     Active Substance: VALGANCICLOVIR
     Indication: Cytomegalovirus infection
     Dosage: ARROW: 450 MG
     Route: 048
     Dates: end: 20220212
  4. VALGANCICLOVIR [Suspect]
     Active Substance: VALGANCICLOVIR
     Dosage: DOSE: 450 MG, 1800 MG
     Route: 048
     Dates: start: 20210909
  5. AMIKACIN [Concomitant]
     Active Substance: AMIKACIN
     Indication: Renal graft infection
     Route: 048
  6. PREDNISONE [Concomitant]
     Active Substance: PREDNISONE
     Indication: Renal transplant
     Route: 048
  7. CELLCEPT [Concomitant]
     Active Substance: MYCOPHENOLATE MOFETIL
     Indication: Renal transplant
  8. DESOGESTREL [Concomitant]
     Active Substance: DESOGESTREL
  9. ENVARSUS XR [Concomitant]
     Active Substance: TACROLIMUS
  10. CALCIPARINE [Concomitant]
     Active Substance: HEPARIN CALCIUM
  11. CALCIPARINE [Concomitant]
     Active Substance: HEPARIN CALCIUM

REACTIONS (1)
  - Agranulocytosis [Recovered/Resolved]

NARRATIVE: CASE EVENT DATE: 20220211
